FAERS Safety Report 6000536-6 (Version None)
Quarter: 2008Q4

REPORT INFORMATION
  Report Type: 
  Country: None (occurrence: None)
  Receive Date: 20081215
  Receipt Date: 20081203
  Transmission Date: 20090506
  Serious: Yes (Other)
  Sender: FDA-Public Use
  Company Number: GB-PFIZER INC-2008150935

PATIENT

DRUGS (4)
  1. EXEMESTANE [Suspect]
     Indication: BREAST CANCER
     Dosage: 25 MG, 1X/DAY
     Route: 048
     Dates: end: 20081113
  2. AMOXICILLIN [Concomitant]
     Indication: INFECTION
     Dosage: 250 MG, 3X/DAY
     Dates: start: 20081112, end: 20081113
  3. PARACETAMOL [Concomitant]
     Indication: PAIN
     Dosage: 1 G, 4X/DAY
     Route: 048
  4. ACEON [Concomitant]
     Indication: HYPERTENSION
     Dosage: 4 MG, UNK
     Route: 048

REACTIONS (3)
  - HAEMATEMESIS [None]
  - HAEMOGLOBIN DECREASED [None]
  - OESOPHAGEAL ULCER [None]
